FAERS Safety Report 12103098 (Version 1)
Quarter: 2016Q1

REPORT INFORMATION
  Report Type: Spontaneous
  Country: AU (occurrence: AU)
  Receive Date: 20160222
  Receipt Date: 20160222
  Transmission Date: 20160526
  Serious: Yes (Other)
  Sender: FDA-Public Use
  Company Number: AU-MYLANLABS-2016M1006967

PATIENT

DRUGS (14)
  1. ESTRADIOL. [Concomitant]
     Active Substance: ESTRADIOL
     Indication: PRODUCT USED FOR UNKNOWN INDICATION
     Route: 065
  2. METFORMIN [Concomitant]
     Active Substance: METFORMIN HYDROCHLORIDE
     Indication: PRODUCT USED FOR UNKNOWN INDICATION
     Route: 065
  3. ATORVASTATIN [Concomitant]
     Active Substance: ATORVASTATIN
     Indication: PRODUCT USED FOR UNKNOWN INDICATION
     Route: 065
  4. RAMIPRIL. [Concomitant]
     Active Substance: RAMIPRIL
     Indication: PRODUCT USED FOR UNKNOWN INDICATION
     Route: 065
  5. LANTUS [Concomitant]
     Active Substance: INSULIN GLARGINE
     Indication: PRODUCT USED FOR UNKNOWN INDICATION
     Route: 065
  6. DOSULEPIN HYDROCHLORIDE [Interacting]
     Active Substance: DOTHIEPIN HYDROCHLORIDE
     Dosage: 175MG
     Route: 065
  7. ASPIRIN                            /00002701/ [Concomitant]
     Active Substance: ASPIRIN
     Indication: PRODUCT USED FOR UNKNOWN INDICATION
     Route: 065
  8. NORFLOXACIN [Concomitant]
     Active Substance: NORFLOXACIN
     Indication: URINARY TRACT INFECTION
     Route: 065
  9. ESCITALOPRAM [Suspect]
     Active Substance: ESCITALOPRAM OXALATE
     Indication: DEPRESSION
     Dosage: 30 MG DAILY
     Route: 065
  10. BUPROPION. [Interacting]
     Active Substance: BUPROPION
     Indication: DEPRESSION
     Dosage: 75MG
     Route: 048
  11. QUETIAPINE [Concomitant]
     Active Substance: QUETIAPINE
     Indication: DEPRESSION
     Dosage: AT NIGHT
     Route: 065
  12. DOSULEPIN HYDROCHLORIDE [Interacting]
     Active Substance: DOTHIEPIN HYDROCHLORIDE
     Indication: DEPRESSION
     Dosage: 225MG
     Route: 065
  13. LAMOTRIGINE. [Concomitant]
     Active Substance: LAMOTRIGINE
     Indication: DEPRESSION
     Route: 065
  14. GLIPIZIDE. [Concomitant]
     Active Substance: GLIPIZIDE
     Indication: PRODUCT USED FOR UNKNOWN INDICATION
     Route: 065

REACTIONS (4)
  - Confusional state [Recovered/Resolved]
  - Akathisia [Unknown]
  - Hyponatraemia [Recovered/Resolved]
  - Drug interaction [Recovered/Resolved]
